FAERS Safety Report 8202655-2 (Version None)
Quarter: 2012Q1

REPORT INFORMATION
  Report Type: 
  Country: None (occurrence: None)
  Receive Date: 20120312
  Receipt Date: 20120305
  Transmission Date: 20120608
  Serious: Yes (Hospitalization, Other)
  Sender: FDA-Public Use
  Company Number: PHHY2012JP019035

PATIENT
  Age: 60 Year
  Sex: Male

DRUGS (6)
  1. SORAFENIB [Interacting]
     Dosage: 400 MG, UNK
  2. SORAFENIB [Interacting]
     Dosage: 600 MG, UNK
  3. ASPIRIN [Concomitant]
  4. WARFARIN SODIUM [Suspect]
     Indication: ACUTE MYOCARDIAL INFARCTION
     Dosage: 3 MG, UNK
     Dates: start: 20080501
  5. WARFARIN SODIUM [Interacting]
     Dosage: 2 MG, UNK
  6. SORAFENIB [Interacting]
     Dosage: 200 MG, UNK
     Dates: start: 20100801

REACTIONS (5)
  - ANAEMIA [None]
  - DRUG INTERACTION [None]
  - HAEMATOCHEZIA [None]
  - OESOPHAGEAL HAEMORRHAGE [None]
  - INTERNATIONAL NORMALISED RATIO INCREASED [None]
